FAERS Safety Report 21571408 (Version 1)
Quarter: 2022Q4

REPORT INFORMATION
  Report Type: Spontaneous
  Country: US (occurrence: None)
  Receive Date: 20221107
  Receipt Date: 20221107
  Transmission Date: 20230112
  Serious: Yes (Hospitalization)
  Sender: FDA-Public Use
  Company Number: None

PATIENT
  Age: 73 Year
  Sex: Male
  Weight: 64.86 kg

DRUGS (2)
  1. WARFARIN SODIUM [Suspect]
     Active Substance: WARFARIN SODIUM
     Indication: Atrial fibrillation
     Dates: start: 20200605
  2. ASPIRIN [Suspect]
     Active Substance: ASPIRIN
     Indication: Coronary artery disease
     Dosage: FREQUENCY : DAILY;?
     Route: 048
     Dates: start: 20131107, end: 20221012

REACTIONS (3)
  - Haematemesis [None]
  - COVID-19 [None]
  - Erosive oesophagitis [None]

NARRATIVE: CASE EVENT DATE: 20220907
